FAERS Safety Report 16878538 (Version 1)
Quarter: 2019Q4

REPORT INFORMATION
  Report Type: Spontaneous
  Country: US (occurrence: US)
  Receive Date: 20191002
  Receipt Date: 20191002
  Transmission Date: 20200122
  Serious: No
  Sender: FDA-Public Use
  Company Number: US-009507513-1910USA001397

PATIENT
  Age: 23 Year
  Sex: Female
  Weight: 99.77 kg

DRUGS (1)
  1. NEXPLANON [Suspect]
     Active Substance: ETONOGESTREL
     Indication: CONTRACEPTION
     Dosage: DOSE: 1 DOSAGE FORM; FRQUNCY: EVERY 3 YEARS
     Route: 059
     Dates: start: 20190919

REACTIONS (3)
  - Device deployment issue [Not Recovered/Not Resolved]
  - Implant site pain [Not Recovered/Not Resolved]
  - Migraine [Not Recovered/Not Resolved]

NARRATIVE: CASE EVENT DATE: 20190919
